FAERS Safety Report 19263353 (Version 3)
Quarter: 2022Q1

REPORT INFORMATION
  Report Type: Other
  Country: DE (occurrence: None)
  Receive Date: 20210517
  Receipt Date: 20220103
  Transmission Date: 20220423
  Serious: Yes (Hospitalization, Other)
  Sender: FDA-Public Use
  Company Number: DE-ROCHE-2829898

PATIENT
  Age: 33 Year
  Sex: Male

DRUGS (3)
  1. OCREVUS [Suspect]
     Active Substance: OCRELIZUMAB
     Indication: Relapsing-remitting multiple sclerosis
     Route: 042
     Dates: start: 202005
  2. OCREVUS [Suspect]
     Active Substance: OCRELIZUMAB
     Route: 042
     Dates: start: 20210419
  3. MODERNA COVID-19 VACCINE [Suspect]
     Active Substance: ELASOMERAN
     Indication: COVID-19
     Route: 065

REACTIONS (5)
  - COVID-19 [Recovered/Resolved]
  - Fall [Unknown]
  - Joint injury [Recovered/Resolved]
  - Impaired healing [Recovered/Resolved]
  - Diplegia [Unknown]

NARRATIVE: CASE EVENT DATE: 20201201
